FAERS Safety Report 5286545-3 (Version None)
Quarter: 2007Q2

REPORT INFORMATION
  Report Type: 
  Country: None (occurrence: None)
  Receive Date: 20070404
  Receipt Date: 20070330
  Transmission Date: 20071010
  Serious: Yes (Death, Hospitalization)
  Sender: FDA-Public Use
  Company Number: FR-SANOFI-SYNTHELABO-F01200600152

PATIENT
  Sex: Male

DRUGS (10)
  1. ATROVENT [Concomitant]
     Dates: start: 20050430, end: 20050511
  2. BRICANYL [Concomitant]
     Dates: start: 20050430, end: 20050511
  3. IMODIUM [Concomitant]
     Dates: start: 20050430
  4. SPASFON [Concomitant]
     Dates: start: 20050430
  5. TRAMADOL HCL [Concomitant]
     Dates: start: 20050430, end: 20050508
  6. DETENSIEL [Concomitant]
     Dates: start: 19920615
  7. DIFFU K [Concomitant]
     Dates: start: 20050430, end: 20050504
  8. LEUCOVORIN CALCIUM [Suspect]
     Route: 042
     Dates: start: 20050419, end: 20050419
  9. FLUOROURACIL [Suspect]
     Route: 042
     Dates: start: 20050419, end: 20050419
  10. OXALIPLATIN [Suspect]
     Indication: COLORECTAL CANCER METASTATIC
     Route: 042
     Dates: start: 20050419, end: 20050419

REACTIONS (2)
  - GENERAL PHYSICAL HEALTH DETERIORATION [None]
  - WEIGHT DECREASED [None]
